FAERS Safety Report 16871290 (Version 1)
Quarter: 2019Q4

REPORT INFORMATION
  Report Type: Spontaneous
  Country: US (occurrence: US)
  Receive Date: 20191001
  Receipt Date: 20191001
  Transmission Date: 20200122
  Serious: No
  Sender: FDA-Public Use
  Company Number: US-CHANGZHOU PHARMACEUTICAL FACTORY-2075111

PATIENT
  Age: 72 Year
  Sex: Male
  Weight: 68.18 kg

DRUGS (1)
  1. ROSUVASTATIN CALCIUM. [Suspect]
     Active Substance: ROSUVASTATIN CALCIUM
     Indication: BLOOD CHOLESTEROL ABNORMAL
     Route: 048
     Dates: start: 20190920, end: 20190922

REACTIONS (1)
  - Urine abnormality [Recovering/Resolving]

NARRATIVE: CASE EVENT DATE: 20190921
